FAERS Safety Report 22267548 (Version 1)
Quarter: 2023Q2

REPORT INFORMATION
  Report Type: Spontaneous
  Country: FR (occurrence: FR)
  Receive Date: 20230430
  Receipt Date: 20230430
  Transmission Date: 20230722
  Serious: Yes (Death, Hospitalization, Other)
  Sender: FDA-Public Use
  Company Number: FR-STRIDES ARCOLAB LIMITED-2023SP006255

PATIENT
  Age: 90 Year
  Sex: Male

DRUGS (13)
  1. DEXAMETHASONE [Suspect]
     Active Substance: DEXAMETHASONE
     Indication: Plasma cell myeloma
     Dosage: UNK (LENALIDOMIDE AND DEXAMETHASONE (RD) REGIMEN)
     Route: 065
  2. DEXAMETHASONE [Suspect]
     Active Substance: DEXAMETHASONE
     Dosage: UNK (REINTRODUCED)
     Route: 065
  3. DEXAMETHASONE [Suspect]
     Active Substance: DEXAMETHASONE
     Dosage: UNK (POMALIDOMIDE, CYCLOPHOSPHAMIDE AND DEXAMETHASONE (PCD) REGIMEN)
     Route: 065
  4. DEXAMETHASONE [Suspect]
     Active Substance: DEXAMETHASONE
     Dosage: UNK, CYCLICAL (ONE CYCLE)
     Route: 065
  5. PREDNISOLONE [Suspect]
     Active Substance: PREDNISOLONE
     Indication: Plasma cell myeloma
     Dosage: UNK, CYCLICAL 9 CYCLE (MELPHALAN, PREDNISOLONE AND BORTEZOMIB (MPV) REGIMEN)
     Route: 065
  6. LENALIDOMIDE [Suspect]
     Active Substance: LENALIDOMIDE
     Indication: Plasma cell myeloma
     Dosage: UNK (LENALIDOMIDE AND DEXAMETHASONE (RD) REGIMEN)
     Route: 065
  7. LENALIDOMIDE [Suspect]
     Active Substance: LENALIDOMIDE
     Dosage: UNK (REINTRODUCED)
     Route: 065
  8. POMALIDOMIDE [Suspect]
     Active Substance: POMALIDOMIDE
     Indication: Plasma cell myeloma
     Dosage: UNK (POMALIDOMIDE, CYCLOPHOSPHAMIDE AND DEXAMETHASONE (PCD) REGIMEN)
     Route: 065
  9. CYCLOPHOSPHAMIDE [Suspect]
     Active Substance: CYCLOPHOSPHAMIDE
     Indication: Plasma cell myeloma
     Dosage: UNK (POMALIDOMIDE, CYCLOPHOSPHAMIDE AND DEXAMETHASONE (PCD) REGIMEN)
     Route: 065
  10. MELPHALAN [Suspect]
     Active Substance: MELPHALAN
     Indication: Plasma cell myeloma
     Dosage: UNK, CYCLICAL 9 CYCLE (MELPHALAN, PREDNISOLONE AND BORTEZOMIB (MPV) REGIMEN )
     Route: 065
  11. BORTEZOMIB [Suspect]
     Active Substance: BORTEZOMIB
     Indication: Plasma cell myeloma
     Dosage: UNK, CYCLICAL 9 CYCLE (MELPHALAN, PREDNISOLONE AND BORTEZOMIB (MPV) REGIMEN )
     Route: 065
  12. DARATUMUMAB [Concomitant]
     Active Substance: DARATUMUMAB
     Indication: Plasma cell myeloma
     Dosage: UNK, CYCLICAL (ONE CYCLE)
     Route: 065
  13. BENDAMUSTINE [Concomitant]
     Active Substance: BENDAMUSTINE
     Indication: Plasma cell myeloma
     Dosage: UNK, CYCLICAL (ONE CYCLE)
     Route: 065

REACTIONS (5)
  - Plasma cell myeloma [Fatal]
  - Osteolysis [Unknown]
  - Actinomycosis [Unknown]
  - Drug ineffective [Unknown]
  - Drug intolerance [Unknown]
